FAERS Safety Report 21989540 (Version 1)
Quarter: 2023Q1

REPORT INFORMATION
  Report Type: Spontaneous
  Country: JP (occurrence: JP)
  Receive Date: 20230214
  Receipt Date: 20230214
  Transmission Date: 20230417
  Serious: Yes (Hospitalization, Other)
  Sender: FDA-Public Use
  Company Number: JP-JAZZ-2023-JP-003271

PATIENT
  Age: 50 Year
  Sex: Female
  Weight: 49.6 kg

DRUGS (3)
  1. DEFITELIO [Suspect]
     Active Substance: DEFIBROTIDE SODIUM
     Indication: Venoocclusive liver disease
     Dosage: 25 MILLIGRAM/KILOGRAM, DAILY
     Route: 042
     Dates: start: 20220922, end: 20220930
  2. DEFITELIO [Suspect]
     Active Substance: DEFIBROTIDE SODIUM
     Dosage: 25 MILLIGRAM/KILOGRAM, DAILY
     Route: 042
     Dates: start: 20221003, end: 20221005
  3. NONTHRON [Concomitant]
     Dosage: UNK
     Dates: start: 20220926, end: 20220926

REACTIONS (3)
  - Haematemesis [Recovered/Resolved]
  - Melaena [Recovering/Resolving]
  - Adenoviral haemorrhagic cystitis [Not Recovered/Not Resolved]

NARRATIVE: CASE EVENT DATE: 20221005
